FAERS Safety Report 19196588 (Version 1)
Quarter: 2021Q2

REPORT INFORMATION
  Report Type: Spontaneous
  Country: US (occurrence: US)
  Receive Date: 20210429
  Receipt Date: 20210429
  Transmission Date: 20210717
  Serious: Yes (Other)
  Sender: FDA-Public Use
  Company Number: US-TEVA-2021-US-1904661

PATIENT
  Age: 26 Year
  Sex: Female

DRUGS (2)
  1. SUMATRIPTAN. [Interacting]
     Active Substance: SUMATRIPTAN
     Indication: MIGRAINE
     Route: 065
  2. IMATINIB. [Suspect]
     Active Substance: IMATINIB MESYLATE
     Indication: URTICARIA PIGMENTOSA
     Dosage: 400 MILLIGRAM DAILY;
     Route: 065
     Dates: start: 201403, end: 201703

REACTIONS (6)
  - Drug interaction [Unknown]
  - Nausea [Unknown]
  - Migraine [Recovered/Resolved]
  - Food allergy [Recovered/Resolved]
  - Fatigue [Unknown]
  - Food interaction [Recovered/Resolved]
